FAERS Safety Report 8191776-9 (Version None)
Quarter: 2012Q1

REPORT INFORMATION
  Report Type: 
  Country: None (occurrence: None)
  Receive Date: 20120307
  Receipt Date: 20120120
  Transmission Date: 20120608
  Serious: Yes (Life-Threatening)
  Sender: FDA-Public Use
  Company Number: CHPA2012US004274

PATIENT
  Sex: Male

DRUGS (1)
  1. EXCEDRIN (MIGRAINE) [Suspect]
     Indication: ARTHRALGIA
     Dosage: UNK , UNK
     Route: 048
     Dates: start: 20090108

REACTIONS (4)
  - SKIN DISORDER [None]
  - THERAPEUTIC RESPONSE UNEXPECTED [None]
  - THROAT TIGHTNESS [None]
  - OFF LABEL USE [None]
